FAERS Safety Report 10064436 (Version 1)
Quarter: 2014Q2

REPORT INFORMATION
  Report Type: Spontaneous
  Country: JP (occurrence: None)
  Receive Date: 20140404
  Receipt Date: 20140404
  Transmission Date: 20141212
  Serious: Yes (Hospitalization)
  Sender: FDA-Public Use
  Company Number: SYM-2014-19148

PATIENT
  Age: 69 Year
  Sex: Male
  Weight: 58 kg

DRUGS (20)
  1. FLUOROURACIL [Suspect]
     Indication: COLORECTAL CANCER
     Route: 040
     Dates: start: 20071203, end: 20071203
  2. ELPLAT [Suspect]
     Indication: RECTAL CANCER
     Route: 041
     Dates: start: 20071203, end: 20071203
  3. CAMPTO [Suspect]
     Indication: RECTAL CANCER
     Route: 041
     Dates: start: 20080819, end: 20080819
  4. AVASTIN [Suspect]
     Indication: RECTAL CANCER
     Route: 041
     Dates: start: 20080819, end: 20080819
  5. CALCIUM LEVOFOLINATE [Concomitant]
  6. KYTRIL [Concomitant]
  7. FLUOROURACIL [Concomitant]
  8. DEXART [Concomitant]
  9. GRANISETRON [Concomitant]
  10. SOLUMEDROL (METHYLPREDNISOLONE SODIUM SUCCINATE) [Concomitant]
  11. CEFTAZIDIME [Concomitant]
  12. FUNGUARD (MICAFUNGIN SODIUM) [Concomitant]
  13. BAKTAR (BACTRIM)(SULFAMETHOXAZOLE, TRIMETHOPRIM) [Concomitant]
  14. PREDNISOLONE [Concomitant]
  15. MEIACT (CEFDITOREN PIVOXIL) [Concomitant]
  16. MYSER (DIFLUPREDNATE) [Concomitant]
  17. LOXOPROFEN SODIUM HYDRATE [Concomitant]
  18. MAGLAX (MAGNESIUM OXIDE) [Concomitant]
  19. PARIET (RABEPRAZOLE SODIUM) [Concomitant]
  20. NAUZELIN (DOMPERIDONE) [Concomitant]

REACTIONS (4)
  - Malaise [None]
  - Neuropathy peripheral [None]
  - Haemoptysis [None]
  - Interstitial lung disease [None]
